FAERS Safety Report 7436289-4 (Version None)
Quarter: 2011Q2

REPORT INFORMATION
  Report Type: 
  Country: None (occurrence: None)
  Receive Date: 20110426
  Receipt Date: 20110415
  Transmission Date: 20111010
  Serious: Yes (Other)
  Sender: FDA-Public Use
  Company Number: US-US-EMD SERONO, INC.-7043366

PATIENT
  Sex: Female
  Weight: 78 kg

DRUGS (3)
  1. REBIF [Suspect]
     Indication: MULTIPLE SCLEROSIS
     Dates: start: 20100419, end: 20110119
  2. REBIF [Suspect]
     Route: 058
     Dates: start: 20110101
  3. LOPID [Suspect]
     Indication: BLOOD CHOLESTEROL

REACTIONS (7)
  - PANCREATIC ENLARGEMENT [None]
  - BLOOD UREA INCREASED [None]
  - HEPATOMEGALY [None]
  - OVARIAN MASS [None]
  - HEPATIC ENZYME INCREASED [None]
  - ABDOMINAL PAIN UPPER [None]
  - BILIARY DILATATION [None]
